FAERS Safety Report 12272201 (Version 1)
Quarter: 2016Q2

REPORT INFORMATION
  Report Type: Spontaneous
  Country: US (occurrence: US)
  Receive Date: 20160415
  Receipt Date: 20160415
  Transmission Date: 20160815
  Serious: Yes (Hospitalization)
  Sender: FDA-Public Use
  Company Number: US-ELI_LILLY_AND_COMPANY-US201604002047

PATIENT
  Sex: Male
  Weight: 128.62 kg

DRUGS (2)
  1. ADCIRCA [Suspect]
     Active Substance: TADALAFIL
     Indication: PRODUCT USED FOR UNKNOWN INDICATION
     Dosage: UNK, UNKNOWN
     Route: 065
  2. TYVASO [Suspect]
     Active Substance: TREPROSTINIL
     Indication: PULMONARY HYPERTENSION
     Dosage: UNK UNK, QID
     Route: 055
     Dates: start: 20150616

REACTIONS (4)
  - Oedema [Unknown]
  - Blood creatinine increased [Unknown]
  - Dyspnoea [Unknown]
  - Abdominal pain [Unknown]
